FAERS Safety Report 22975457 (Version 3)
Quarter: 2023Q4

REPORT INFORMATION
  Report Type: Report from Study
  Country: KR (occurrence: KR)
  Receive Date: 20230924
  Receipt Date: 20231015
  Transmission Date: 20240109
  Serious: Yes (Death, Hospitalization)
  Sender: FDA-Public Use
  Company Number: KR-BoehringerIngelheim-2023-BI-216869

PATIENT
  Age: 78 Year
  Sex: Male
  Weight: 47.7 kg

DRUGS (5)
  1. NINTEDANIB [Suspect]
     Active Substance: NINTEDANIB
     Indication: Idiopathic pulmonary fibrosis
     Route: 048
     Dates: start: 20161123, end: 20180429
  2. NINTEDANIB [Suspect]
     Active Substance: NINTEDANIB
     Route: 048
     Dates: start: 20180430, end: 20230825
  3. NEXIUM [Concomitant]
     Active Substance: ESOMEPRAZOLE MAGNESIUM
     Indication: Product used for unknown indication
     Route: 048
  4. ERDOIN [Concomitant]
     Indication: Product used for unknown indication
     Route: 048
  5. synatura syrup [Concomitant]
     Indication: Product used for unknown indication
     Route: 048

REACTIONS (7)
  - Respiratory failure [Fatal]
  - Pneumonia [Recovered/Resolved]
  - Diarrhoea [Recovered/Resolved]
  - Decreased appetite [Not Recovered/Not Resolved]
  - Asthenia [Not Recovered/Not Resolved]
  - Vasculitis [Not Recovered/Not Resolved]
  - Pulmonary alveolar haemorrhage [Not Recovered/Not Resolved]

NARRATIVE: CASE EVENT DATE: 20230202
